FAERS Safety Report 9756041 (Version 1)
Quarter: 2013Q4

REPORT INFORMATION
  Report Type: Spontaneous
  Country: US (occurrence: US)
  Receive Date: 20131213
  Receipt Date: 20131213
  Transmission Date: 20140711
  Serious: No
  Sender: FDA-Public Use
  Company Number: US-GLAXOSMITHKLINE-A1028682A

PATIENT
  Sex: Female

DRUGS (3)
  1. NICODERM CQ 21MG [Suspect]
     Indication: EX-TOBACCO USER
  2. NICODERM CQ 14MG [Suspect]
     Indication: EX-TOBACCO USER
  3. NICODERM CQ [Suspect]
     Indication: EX-TOBACCO USER

REACTIONS (4)
  - Drug administration error [Unknown]
  - Hypersensitivity [Unknown]
  - Application site rash [Unknown]
  - Application site swelling [Unknown]
